FAERS Safety Report 10363851 (Version 3)
Quarter: 2014Q3

REPORT INFORMATION
  Report Type: Spontaneous
  Country: US (occurrence: US)
  Receive Date: 20140805
  Receipt Date: 20140924
  Transmission Date: 20150326
  Serious: Yes (Hospitalization)
  Sender: FDA-Public Use
  Company Number: US-BRACCO-011161

PATIENT
  Age: 51 Year
  Sex: Male
  Weight: 99 kg

DRUGS (5)
  1. FINASTERIDE. [Concomitant]
     Active Substance: FINASTERIDE
     Route: 048
  2. AMITIZA [Concomitant]
     Active Substance: LUBIPROSTONE
     Route: 048
  3. ISOVUE-M [Suspect]
     Active Substance: IOPAMIDOL
     Indication: SPINAL MYELOGRAM
     Dosage: INTRTHECAL INJECTION AT C1-2
     Route: 037
     Dates: start: 20140625, end: 20140625
  4. TESTOSTERONE CYPIONATE. [Concomitant]
     Active Substance: TESTOSTERONE CYPIONATE
     Dosage: 200MG/ ML, 1CC IM WEEKLY
     Route: 030
  5. ANASTROZOLE. [Concomitant]
     Active Substance: ANASTROZOLE
     Route: 048

REACTIONS (4)
  - Meningitis bacterial [Recovered/Resolved]
  - Rhabdomyolysis [Recovered/Resolved]
  - Meningitis chemical [Recovered/Resolved]
  - Acute respiratory failure [Recovered/Resolved]

NARRATIVE: CASE EVENT DATE: 20140626
